FAERS Safety Report 4790443-9 (Version None)
Quarter: 2005Q4

REPORT INFORMATION
  Report Type: 
  Country: None (occurrence: None)
  Receive Date: 20051005
  Receipt Date: 20050923
  Transmission Date: 20060501
  Serious: Yes (Death, Other)
  Sender: FDA-Public Use
  Company Number: 2005117519

PATIENT
  Age: 78 Year
  Sex: Female

DRUGS (9)
  1. MACUGEN [Suspect]
     Indication: MACULAR DEGENERATION
     Dosage: 0.3 MG, 1 IN 6 WK, INTRAVENOUS
     Route: 042
     Dates: start: 20050303, end: 20050715
  2. SOTALOL HCL [Concomitant]
  3. METHIMAZOLE [Concomitant]
  4. MAGNESIUM (MAGNESIUM) [Concomitant]
  5. POTASSIUM CHLORIDE [Concomitant]
  6. CALCIUM (CALCIUM) [Concomitant]
  7. ASPIRIN [Concomitant]
  8. OCUVITE (ASCORBIC ACID, RETINOL, TOCOPHEROL) [Concomitant]
  9. COUMADIN [Concomitant]

REACTIONS (1)
  - CEREBROVASCULAR ACCIDENT [None]
